FAERS Safety Report 4331895-8 (Version None)
Quarter: 2004Q2

REPORT INFORMATION
  Report Type: 
  Country: None (occurrence: None)
  Receive Date: 20040405
  Receipt Date: 19960418
  Transmission Date: 20050107
  Serious: No
  Sender: FDA-Public Use
  Company Number: US-GLAXOSMITHKLINE-A0043144A

PATIENT
  Age: 45 Year
  Sex: Female

DRUGS (6)
  1. SEREVENT [Suspect]
     Route: 055
     Dates: start: 19940401
  2. SEREVENT [Suspect]
     Route: 055
  3. VENTOLIN [Concomitant]
  4. VANCERIL [Concomitant]
  5. THEO-DUR [Concomitant]
  6. PRIMATENE MIST [Concomitant]

REACTIONS (2)
  - DRUG INTOLERANCE [None]
  - TACHYCARDIA [None]
